FAERS Safety Report 12206938 (Version 1)
Quarter: 2016Q1

REPORT INFORMATION
  Report Type: Spontaneous
  Country: US (occurrence: None)
  Receive Date: 20160323
  Receipt Date: 20160323
  Transmission Date: 20160526
  Serious: Yes (Other)
  Sender: FDA-Public Use
  Company Number: None

PATIENT
  Age: 7 Year
  Sex: Male
  Weight: 27.22 kg

DRUGS (3)
  1. INTUNIV [Suspect]
     Active Substance: GUANFACINE HYDROCHLORIDE
     Indication: ATTENTION DEFICIT/HYPERACTIVITY DISORDER
     Dosage: 1 @ 7PM ONCE DAILY BY MOUTH
     Route: 048
     Dates: start: 2012, end: 20151231
  2. VYVANSE [Concomitant]
     Active Substance: LISDEXAMFETAMINE DIMESYLATE
  3. INTUNIV [Suspect]
     Active Substance: GUANFACINE HYDROCHLORIDE
     Indication: ADJUVANT THERAPY
     Dosage: 1 @ 7PM ONCE DAILY BY MOUTH
     Route: 048
     Dates: start: 2012, end: 20151231

REACTIONS (3)
  - Hallucination, visual [None]
  - Hallucination [None]
  - Paranoia [None]
